FAERS Safety Report 21047084 (Version 15)
Quarter: 2023Q2

REPORT INFORMATION
  Report Type: Report from Study
  Country: CN (occurrence: CN)
  Receive Date: 20220706
  Receipt Date: 20230407
  Transmission Date: 20230722
  Serious: Yes (Hospitalization)
  Sender: FDA-Public Use
  Company Number: CN-NOVARTISPH-NVSC2021CN197298

PATIENT
  Age: 41 Year
  Sex: Female
  Weight: 78 kg

DRUGS (18)
  1. KISQALI [Suspect]
     Active Substance: RIBOCICLIB
     Indication: Hormone receptor positive HER2 negative breast cancer
     Dosage: 400 MG, QD (FIRST CYCLE)
     Route: 048
     Dates: start: 20210316
  2. KISQALI [Suspect]
     Active Substance: RIBOCICLIB
     Dosage: 400 MG, QD (SECOND CYCLE)
     Route: 048
     Dates: start: 20210413
  3. KISQALI [Suspect]
     Active Substance: RIBOCICLIB
     Dosage: 400 MG, QD (THIRD CYCLE)
     Route: 048
     Dates: start: 20210510
  4. KISQALI [Suspect]
     Active Substance: RIBOCICLIB
     Dosage: 400 MG, QD (FOURTH CYCLE)
     Route: 048
     Dates: start: 20210608
  5. KISQALI [Suspect]
     Active Substance: RIBOCICLIB
     Dosage: 400 MG, QD (FIFTH CYCLE)
     Route: 048
     Dates: start: 20210706
  6. KISQALI [Suspect]
     Active Substance: RIBOCICLIB
     Dosage: 400 MG, QD (SIXTH CYCLE)
     Route: 048
     Dates: start: 20210803
  7. FEMARA [Suspect]
     Active Substance: LETROZOLE
     Indication: Hormone receptor positive HER2 negative breast cancer
     Dosage: 2.5 MG, QD (FIRST CYCLE)
     Route: 048
     Dates: start: 20210316
  8. FEMARA [Suspect]
     Active Substance: LETROZOLE
     Dosage: 2.5 MG, QD (SECOND CYCLE)
     Route: 048
     Dates: start: 20210316
  9. FEMARA [Suspect]
     Active Substance: LETROZOLE
     Dosage: 2.5 MG, QD (THIRD CYCLE)
     Route: 048
     Dates: start: 20210510
  10. FEMARA [Suspect]
     Active Substance: LETROZOLE
     Dosage: 2.5 MG, QD (FOURTH CYCLE)
     Route: 048
     Dates: start: 20210608
  11. FEMARA [Suspect]
     Active Substance: LETROZOLE
     Dosage: 2.5 MG, QD (FIFTH CYCLE)
     Route: 048
     Dates: start: 20210706
  12. FEMARA [Suspect]
     Active Substance: LETROZOLE
     Dosage: 2.5 MG, QD (SIXTH CYCLE)
     Route: 048
     Dates: start: 20210803
  13. GOSERELIN [Suspect]
     Active Substance: GOSERELIN
     Indication: Hormone receptor positive HER2 negative breast cancer
     Dosage: 3.6 MG, QD (FIRST CYCLE)
     Route: 058
     Dates: start: 20210405
  14. GOSERELIN [Suspect]
     Active Substance: GOSERELIN
     Dosage: 3.6 MG, QD (SECOND CYCLE)
     Route: 058
     Dates: start: 20210503
  15. GOSERELIN [Suspect]
     Active Substance: GOSERELIN
     Dosage: 3.6 MG, QD (THIRD CYCLE)
     Route: 058
     Dates: start: 20210531
  16. GOSERELIN [Suspect]
     Active Substance: GOSERELIN
     Dosage: 3.6 MG, QD (FOURTH CYCLE)
     Route: 058
     Dates: start: 20210628
  17. GOSERELIN [Suspect]
     Active Substance: GOSERELIN
     Dosage: 3.6 MG, QD (FIFTH CYCLE)
     Route: 058
     Dates: start: 20210726
  18. GOSERELIN [Suspect]
     Active Substance: GOSERELIN
     Dosage: 3.6 MG, QD (SIXTH CYCLE)
     Route: 058
     Dates: start: 20210823

REACTIONS (2)
  - Upper respiratory tract infection [Recovered/Resolved]
  - Bronchitis [Recovered/Resolved]

NARRATIVE: CASE EVENT DATE: 20210808
